FAERS Safety Report 7223625-7 (Version None)
Quarter: 2011Q1

REPORT INFORMATION
  Report Type: 
  Country: None (occurrence: None)
  Receive Date: 20110112
  Receipt Date: 20100913
  Transmission Date: 20110831
  Serious: No
  Sender: FDA-Public Use
  Company Number: US-ALLERGAN-1011799US

PATIENT
  Age: 63 Year
  Sex: Female

DRUGS (6)
  1. RESTASIS [Suspect]
     Indication: DRY EYE
     Dosage: 1 GTT, BID
     Route: 047
     Dates: start: 20100601
  2. BYSTOLIC [Concomitant]
     Indication: HYPERTENSION
  3. BLINK                              /00582501/ [Concomitant]
  4. PREVACID [Concomitant]
  5. ZETIA [Concomitant]
  6. TRILIPIX [Concomitant]

REACTIONS (1)
  - EYE IRRITATION [None]
